FAERS Safety Report 11196761 (Version 1)
Quarter: 2015Q2

REPORT INFORMATION
  Report Type: Spontaneous
  Country: US (occurrence: US)
  Receive Date: 20150617
  Receipt Date: 20150617
  Transmission Date: 20150821
  Serious: No
  Sender: FDA-Public Use
  Company Number: US-009507513-1505USA009523

PATIENT
  Age: 38 Year
  Sex: Female
  Weight: 81.63 kg

DRUGS (3)
  1. NUVARING [Suspect]
     Active Substance: ETHINYL ESTRADIOL\ETONOGESTREL
     Indication: CONTRACEPTION
     Dosage: UNK
     Route: 067
     Dates: start: 201504, end: 201505
  2. FLUCONAZOLE. [Concomitant]
     Active Substance: FLUCONAZOLE
     Indication: BACTERIAL INFECTION
  3. DIFLUCAN [Concomitant]
     Active Substance: FLUCONAZOLE
     Indication: FUNGAL INFECTION

REACTIONS (6)
  - Musculoskeletal discomfort [Unknown]
  - Abdominal distension [Unknown]
  - Fungal infection [Unknown]
  - Device difficult to use [Recovered/Resolved]
  - Bacterial infection [Unknown]
  - Medical device complication [Recovered/Resolved]

NARRATIVE: CASE EVENT DATE: 201504
